FAERS Safety Report 9304164 (Version 1)
Quarter: 2013Q2

REPORT INFORMATION
  Report Type: Spontaneous
  Country: US (occurrence: None)
  Receive Date: 20121206
  Receipt Date: 20130606
  Transmission Date: 20140414
  Serious: Yes (Hospitalization, Other)
  Sender: FDA-Public Use
  Company Number: JPI-P-012525

PATIENT
  Age: 49 Year
  Sex: Female
  Weight: 72.58 kg

DRUGS (5)
  1. XYREM [Suspect]
     Indication: NARCOLEPSY
     Dosage: (2 GM, 2 IN 1 D0
     Route: 048
     Dates: start: 20100726, end: 2010
  2. XYREM [Suspect]
     Indication: SOMNOLENCE
     Dosage: (2 GM, 2 IN 1 D0
     Route: 048
     Dates: start: 20100726, end: 2010
  3. UNSPECIFIED [Suspect]
     Indication: HEART RATE INCREASED
     Dates: start: 2010
  4. INTERFERON [Suspect]
     Indication: HEPATITIS C
  5. UNSPECIFIED CONCOMITANT MEDICATIONS [Concomitant]

REACTIONS (11)
  - Fall [None]
  - Ankle fracture [None]
  - Heart rate decreased [None]
  - Syncope [None]
  - Lower limb fracture [None]
  - Hepatitis C [None]
  - Hepatic cirrhosis [None]
  - Cardiac arrest [None]
  - Malaise [None]
  - Loss of consciousness [None]
  - Bradycardia [None]
